FAERS Safety Report 14699787 (Version 1)
Quarter: 2018Q1

REPORT INFORMATION
  Report Type: Spontaneous
  Country: DE (occurrence: DE)
  Receive Date: 20180330
  Receipt Date: 20180330
  Transmission Date: 20180509
  Serious: Yes (Other)
  Sender: FDA-Public Use
  Company Number: DE-MYLANLABS-2018M1018866

PATIENT
  Age: 68 Year
  Sex: Female

DRUGS (2)
  1. MTX-DURA 7,5 MG/ML INJEKTIONSL?SUNG [Suspect]
     Active Substance: METHOTREXATE SODIUM
     Indication: RHEUMATOID ARTHRITIS
     Dosage: UNK
  2. PREDNISONE. [Concomitant]
     Active Substance: PREDNISONE
     Indication: RHEUMATOID ARTHRITIS
     Dosage: 7.5 MG, QD

REACTIONS (2)
  - Drug ineffective [Recovered/Resolved]
  - No adverse event [Unknown]
